FAERS Safety Report 8345508-1 (Version None)
Quarter: 2012Q2

REPORT INFORMATION
  Report Type: 
  Country: None (occurrence: None)
  Receive Date: 20120508
  Receipt Date: 20120507
  Transmission Date: 20120825
  Serious: Yes (Other)
  Sender: FDA-Public Use
  Company Number: JP-PFIZER INC-2012072855

PATIENT
  Age: 42 Year
  Sex: Male

DRUGS (9)
  1. ZOLOFT [Suspect]
     Indication: DYSTHYMIC DISORDER
     Dosage: 25 MG, 1X/DAY
     Route: 048
     Dates: start: 20061004, end: 20061019
  2. ZOLOFT [Suspect]
     Dosage: 100 MG, 1X/DAY
     Route: 048
     Dates: start: 20070606
  3. ZOLOFT [Suspect]
     Dosage: 50 MG, 1X/DAY
     Route: 048
     Dates: start: 20070511, end: 20070522
  4. AMOBAN [Concomitant]
     Indication: INSOMNIA
     Dosage: 10 MG, 1X/DAY
     Route: 048
     Dates: start: 20070112, end: 20080509
  5. ZOLOFT [Suspect]
     Dosage: 75 MG, 1X/DAY
     Route: 048
     Dates: start: 20070523, end: 20070605
  6. RIZE [Concomitant]
     Indication: ANXIETY
     Dosage: 5 MG, 3X/DAY
     Route: 048
     Dates: start: 20070815, end: 20070910
  7. ZOLOFT [Suspect]
     Indication: DEPRESSION
     Dosage: 50 MG, 1X/DAY
     Route: 048
     Dates: start: 20061020, end: 20061031
  8. RIZE [Concomitant]
     Indication: IRRITABILITY
     Dosage: 5 MG TWICE DAILY AND 10 MG ONCE DAILY (20 MG/DAY TOTAL)
     Route: 048
     Dates: start: 20070911, end: 20080912
  9. ZOLOFT [Suspect]
     Dosage: 75 MG, 1X/DAY
     Route: 048
     Dates: start: 20061101, end: 20070325

REACTIONS (1)
  - ACTIVATION SYNDROME [None]
